FAERS Safety Report 4693094-X (Version None)
Quarter: 2005Q2

REPORT INFORMATION
  Report Type: 
  Country: None (occurrence: None)
  Receive Date: 20050617
  Receipt Date: 20050525
  Transmission Date: 20051028
  Serious: Yes (Other)
  Sender: FDA-Public Use
  Company Number: FR-BRISTOL-MYERS SQUIBB COMPANY-12983458

PATIENT
  Age: 84 Year
  Sex: Female
  Weight: 65 kg

DRUGS (8)
  1. FUNGIZONE [Suspect]
     Indication: FUNGAL INFECTION
     Route: 048
     Dates: start: 20050520, end: 20050523
  2. TRAMADOL [Suspect]
     Dates: start: 20030101, end: 20050524
  3. COLCHICINE [Suspect]
     Dates: start: 20050518, end: 20050524
  4. OMEPRAZOLE [Concomitant]
     Dates: start: 20030101
  5. ASPEGIC 325 [Concomitant]
  6. PARACETAMOL [Concomitant]
  7. DEROXAT [Concomitant]
     Dates: start: 20030101
  8. OXYBUTYNIN [Concomitant]

REACTIONS (1)
  - HALLUCINATION, VISUAL [None]
